FAERS Safety Report 7954617 (Version 2)
Quarter: 2013Q1

REPORT INFORMATION
  Report Type: Spontaneous
  Country: US (occurrence: US)
  Receive Date: 20110520
  Receipt Date: 20130319
  Transmission Date: 20140127
  Serious: No
  Sender: FDA-Public Use
  Company Number: US-RB-027538-11

PATIENT
  Sex: Male
  Weight: 59 kg

DRUGS (17)
  1. SUBOXONE FILM [Suspect]
     Indication: ALCOHOLISM
     Dosage: DOSING INFORMATION UNKNOWN
     Route: 065
     Dates: start: 2011, end: 2011
  2. ETOH [Suspect]
     Indication: ALCOHOLISM
     Route: 048
  3. COCAINE [Suspect]
     Indication: DRUG DEPENDENCE
     Route: 065
  4. HEROIN [Suspect]
     Dosage: DOSING INFORMATION UNKNOWN
     Route: 045
  5. ADVAIR DISKUS [Concomitant]
     Indication: PRODUCT USED FOR UNKNOWN INDICATION
     Dosage: 500-50MCG/DOSE - ONE PUFF TWICE DAILY
     Route: 055
  6. ZANTAC [Concomitant]
     Indication: PRODUCT USED FOR UNKNOWN INDICATION
     Route: 048
  7. PROVENTIL HFA 108 [Concomitant]
     Indication: PRODUCT USED FOR UNKNOWN INDICATION
     Dosage: 2 PUFFS EVERY 4 TO 6 HOURS PRN
     Route: 055
  8. BOOST LQD [Concomitant]
     Indication: PRODUCT USED FOR UNKNOWN INDICATION
     Dosage: DOSAGE DETAILS NOT SPECIFIED
     Route: 065
  9. CLARITIN [Concomitant]
     Indication: PRODUCT USED FOR UNKNOWN INDICATION
     Route: 065
  10. ANTI-OXIDANT TABS [Concomitant]
     Indication: PRODUCT USED FOR UNKNOWN INDICATION
     Route: 048
  11. B-1 [Concomitant]
     Indication: PRODUCT USED FOR UNKNOWN INDICATION
     Route: 048
  12. EQL FOLIC ACID [Concomitant]
     Indication: PRODUCT USED FOR UNKNOWN INDICATION
     Route: 048
  13. CYMBALTA [Concomitant]
     Indication: PRODUCT USED FOR UNKNOWN INDICATION
     Dosage: EVERY MORNING
     Route: 065
  14. NAPROXEN [Concomitant]
     Indication: PAIN
     Dosage: ONE EVERY 12 HOURS AS NEEDED
     Route: 065
  15. SEROQUEL [Concomitant]
     Indication: PRODUCT USED FOR UNKNOWN INDICATION
     Dosage: ONE EVERY PM
     Route: 065
  16. NORVASC [Concomitant]
     Indication: PRODUCT USED FOR UNKNOWN INDICATION
     Route: 048
  17. ALER-DRYL [Concomitant]
     Indication: INSOMNIA
     Dosage: ONE BEFORE BEDTIME  AS NEEDED.
     Route: 048

REACTIONS (2)
  - Substance abuse [Recovered/Resolved]
  - Malaise [Recovered/Resolved]
